FAERS Safety Report 5898645-5 (Version None)
Quarter: 2008Q3

REPORT INFORMATION
  Report Type: 
  Country: None (occurrence: None)
  Receive Date: 20080925
  Receipt Date: 20080313
  Transmission Date: 20090109
  Serious: No
  Sender: FDA-Public Use
  Company Number: A0715251A

PATIENT
  Age: 69 Year
  Sex: Female

DRUGS (4)
  1. WELLBUTRIN XL [Suspect]
     Indication: ANXIETY
     Dosage: 150MG PER DAY
     Route: 048
     Dates: start: 20071201, end: 20080201
  2. LIPITOR [Concomitant]
  3. EVISTA [Concomitant]
  4. ZOLOFT [Concomitant]

REACTIONS (2)
  - PHOTOSENSITIVITY REACTION [None]
  - RASH [None]
